FAERS Safety Report 8115533-4 (Version None)
Quarter: 2012Q1

REPORT INFORMATION
  Report Type: 
  Country: None (occurrence: None)
  Receive Date: 20120206
  Receipt Date: 20120131
  Transmission Date: 20120608
  Serious: Yes (Death, Hospitalization, Other)
  Sender: FDA-Public Use
  Company Number: US-SANOFI-AVENTIS-A03200607586

PATIENT
  Age: 74 Year
  Sex: Male

DRUGS (33)
  1. LANOXIN [Concomitant]
  2. PREVACID [Concomitant]
  3. BEXTRA [Concomitant]
  4. CLOPIDOGREL BISULFATE [Suspect]
     Route: 048
     Dates: start: 20030701, end: 20030701
  5. ASPIRIN [Suspect]
     Route: 048
     Dates: start: 20021101
  6. INFLUENZA VACCINE [Concomitant]
     Dates: start: 20031016, end: 20031016
  7. CLOPIDOGREL BISULFATE [Suspect]
     Dosage: UNIT DOSE: 75 MG
     Route: 048
     Dates: start: 20021101
  8. CLOPIDOGREL BISULFATE [Suspect]
     Indication: STENT PLACEMENT
     Dosage: UNIT DOSE: 75 MG
     Route: 048
     Dates: start: 20021101
  9. CLOPIDOGREL BISULFATE [Suspect]
     Route: 048
     Dates: start: 20030702
  10. CLOPIDOGREL BISULFATE [Suspect]
     Route: 048
     Dates: start: 20030702
  11. ASPIRIN [Suspect]
  12. HYTRIN [Concomitant]
     Route: 048
     Dates: start: 20020530
  13. NITROGLYCERIN [Concomitant]
  14. ZOCOR [Concomitant]
  15. TOPROL-XL [Concomitant]
  16. PROCARDIA [Concomitant]
  17. DIGOXIN [Concomitant]
  18. LOTREL [Concomitant]
  19. XALATAN [Concomitant]
  20. ASPIRIN [Suspect]
  21. CELEBREX [Concomitant]
  22. SKELAXIN [Concomitant]
  23. ASPIRIN [Suspect]
     Indication: STENT PLACEMENT
     Route: 048
     Dates: start: 20021101
  24. TERAZOSIN HCL [Concomitant]
  25. COZAAR [Concomitant]
  26. NORVASC [Concomitant]
  27. LASIX [Concomitant]
  28. VITAMIN TAB [Concomitant]
  29. TIMOPTIC [Concomitant]
  30. METHYLPREDNISOLONE [Concomitant]
  31. CLOPIDOGREL BISULFATE [Suspect]
     Route: 048
     Dates: start: 20030701, end: 20030701
  32. PILOCARPINE [Concomitant]
  33. VITAMIN E [Concomitant]

REACTIONS (19)
  - CHOLELITHIASIS [None]
  - RENAL CYST [None]
  - BRAIN INJURY [None]
  - RENAL PAIN [None]
  - BRAIN HERNIATION [None]
  - RESPIRATORY FAILURE [None]
  - CORONARY ARTERY OCCLUSION [None]
  - POSTURING [None]
  - TESTICULAR PAIN [None]
  - BACK PAIN [None]
  - BRAIN STEM SYNDROME [None]
  - GASTRITIS [None]
  - CHOLECYSTITIS ACUTE [None]
  - MYOCARDIAL INFARCTION [None]
  - COUGH [None]
  - BILIARY COLIC [None]
  - SUBDURAL HAEMATOMA [None]
  - COMA [None]
  - ARTHRALGIA [None]
